FAERS Safety Report 11497489 (Version 6)
Quarter: 2018Q4

REPORT INFORMATION
  Report Type: Spontaneous
  Country: US (occurrence: US)
  Receive Date: 20150911
  Receipt Date: 20181211
  Transmission Date: 20190204
  Serious: Yes (Hospitalization, Other)
  Sender: FDA-Public Use
  Company Number: US-DSJP-DSU-2015-117876

PATIENT

DRUGS (1)
  1. BENICAR HCT [Suspect]
     Active Substance: HYDROCHLOROTHIAZIDE\OLMESARTAN MEDOXOMIL
     Indication: HYPERTENSION
     Dosage: 40-12.5 MG, QD
     Route: 048
     Dates: start: 20120117, end: 2014

REACTIONS (14)
  - Inflammatory bowel disease [Recovering/Resolving]
  - Diverticulum [Unknown]
  - Metabolic acidosis [Unknown]
  - Nephrolithiasis [Unknown]
  - Acute kidney injury [Recovering/Resolving]
  - Duodenal polyp [Unknown]
  - Gastrooesophageal reflux disease [Unknown]
  - Hiatus hernia [Unknown]
  - Haematemesis [Recovering/Resolving]
  - Ascites [Unknown]
  - Sprue-like enteropathy [Recovering/Resolving]
  - Haemorrhoids [Unknown]
  - Hypotension [Unknown]
  - Chronic kidney disease [Not Recovered/Not Resolved]

NARRATIVE: CASE EVENT DATE: 20130219
